FAERS Safety Report 8771091 (Version 1)
Quarter: 2012Q4

REPORT INFORMATION
  Report Type: 
  Country: DE (occurrence: DE)
  Receive Date: 20120906
  Receipt Date: 20120906
  Transmission Date: 20130627
  Serious: Yes (Other)
  Sender: FDA-Public Use
  Company Number: DE-EISAI INC-E3810-05846-SPO-DE

PATIENT
  Sex: Female

DRUGS (1)
  1. PARIET (RABEPRAZOLE) [Suspect]
     Indication: REFLUX OESOPHAGITIS
     Route: 048
     Dates: start: 2006, end: 201201

REACTIONS (3)
  - Flushing [Recovered/Resolved]
  - Blood pressure increased [Recovered/Resolved]
  - Blood chromogranin A increased [Not Recovered/Not Resolved]
